FAERS Safety Report 8323040-9 (Version None)
Quarter: 2012Q2

REPORT INFORMATION
  Report Type: 
  Country: None (occurrence: None)
  Receive Date: 20120430
  Receipt Date: 20120424
  Transmission Date: 20120825
  Serious: No
  Sender: FDA-Public Use
  Company Number: US-PFIZER INC-2012101584

PATIENT
  Sex: Female

DRUGS (1)
  1. AZITHROMYCIN [Suspect]
     Dosage: UNK
     Dates: start: 20120101

REACTIONS (6)
  - ARTHRITIS [None]
  - URTICARIA [None]
  - GAIT DISTURBANCE [None]
  - PYREXIA [None]
  - ARTHRALGIA [None]
  - HYPERSENSITIVITY [None]
